FAERS Safety Report 15775355 (Version 1)
Quarter: 2018Q4

REPORT INFORMATION
  Report Type: Spontaneous
  Country: US (occurrence: US)
  Receive Date: 20181231
  Receipt Date: 20181231
  Transmission Date: 20190205
  Serious: No
  Sender: FDA-Public Use
  Company Number: US-DRREDDYS-USA/USA/17/0094647

PATIENT
  Age: 64 Year
  Sex: Female
  Weight: 64.5 kg

DRUGS (2)
  1. NICOTINE. [Suspect]
     Active Substance: NICOTINE
     Route: 065
  2. NICOTINE. [Suspect]
     Active Substance: NICOTINE
     Indication: PRODUCT USED FOR UNKNOWN INDICATION
     Route: 065

REACTIONS (9)
  - Toxicity to various agents [Unknown]
  - Drug effect increased [Unknown]
  - Nausea [Not Recovered/Not Resolved]
  - Dry mouth [Not Recovered/Not Resolved]
  - Hypoaesthesia oral [Not Recovered/Not Resolved]
  - Wrong technique in product usage process [Unknown]
  - Dysgeusia [Not Recovered/Not Resolved]
  - Expired product administered [Unknown]
  - Euphoric mood [Unknown]
